FAERS Safety Report 16210559 (Version 2)
Quarter: 2019Q2

REPORT INFORMATION
  Report Type: Report from Study
  Country: US (occurrence: US)
  Receive Date: 20190418
  Receipt Date: 20190605
  Transmission Date: 20190711
  Serious: Yes (Other)
  Sender: FDA-Public Use
  Company Number: US-ROCHE-2304082

PATIENT
  Sex: Female

DRUGS (2)
  1. OCREVUS [Suspect]
     Active Substance: OCRELIZUMAB
     Dosage: STOPPED AFTER 1ST DOSE ;ONGOING: NO
     Route: 042
     Dates: start: 20171115, end: 20171115
  2. OCREVUS [Suspect]
     Active Substance: OCRELIZUMAB
     Indication: RELAPSING MULTIPLE SCLEROSIS
     Dosage: REPEAT IN 2 WEEKS.?MOST RECENT DOSE WAS RECEIVED IN NOV/DEC-2018?ANTICIPATED DATE OF TREATMENT: 5/2/
     Route: 042
     Dates: start: 20171101, end: 20171101

REACTIONS (1)
  - Pneumonia [Recovered/Resolved]
